FAERS Safety Report 14382027 (Version 5)
Quarter: 2021Q3

REPORT INFORMATION
  Report Type: Report from Study
  Country: US (occurrence: US)
  Receive Date: 20180112
  Receipt Date: 20210705
  Transmission Date: 20211014
  Serious: Yes (Hospitalization)
  Sender: FDA-Public Use
  Company Number: US-CELGENEUS-USA-20180102504

PATIENT
  Age: 71 Year
  Sex: Male
  Weight: 49.9 kg

DRUGS (1)
  1. VIDAZA [Suspect]
     Active Substance: AZACITIDINE
     Indication: ACUTE MYELOID LEUKAEMIA
     Dosage: 100 MILLIGRAM
     Route: 058
     Dates: start: 20161001, end: 20171229

REACTIONS (4)
  - Pancytopenia [Not Recovered/Not Resolved]
  - Tachycardia [Not Recovered/Not Resolved]
  - Normocytic anaemia [Not Recovered/Not Resolved]
  - Thrombocytopenia [Not Recovered/Not Resolved]

NARRATIVE: CASE EVENT DATE: 20170324
